FAERS Safety Report 24798521 (Version 1)
Quarter: 2025Q1

REPORT INFORMATION
  Report Type: Spontaneous
  Country: US (occurrence: US)
  Receive Date: 20250102
  Receipt Date: 20250102
  Transmission Date: 20250409
  Serious: No
  Sender: SANOFI AVENTIS
  Company Number: US-SA-2024SA384874

PATIENT
  Age: 76 Year
  Sex: Female

DRUGS (23)
  1. KEVZARA [Suspect]
     Active Substance: SARILUMAB
     Dosage: 200 MG, QOW
     Route: 058
     Dates: start: 20221121
  2. ACETAMINOPHEN [Concomitant]
     Active Substance: ACETAMINOPHEN
  3. ALBUTEROL SULFATE [Concomitant]
     Active Substance: ALBUTEROL SULFATE
  4. ASPIRIN [Concomitant]
     Active Substance: ASPIRIN
  5. BREO ELLIPTA [Concomitant]
     Active Substance: FLUTICASONE FUROATE\VILANTEROL TRIFENATATE
  6. BUMETANIDE [Concomitant]
     Active Substance: BUMETANIDE
  7. CARVEDILOL [Concomitant]
     Active Substance: CARVEDILOL
  8. FEXOFENADINE HYDROCHLORIDE [Concomitant]
     Active Substance: FEXOFENADINE HYDROCHLORIDE
  9. FLUTICASONE PROPIONATE [Concomitant]
     Active Substance: FLUTICASONE PROPIONATE
  10. GABAPENTIN [Concomitant]
     Active Substance: GABAPENTIN
  11. GLUCAGON [Concomitant]
     Active Substance: GLUCAGON
  12. ISOSORBIDE DINITRATE [Concomitant]
     Active Substance: ISOSORBIDE DINITRATE
  13. LEVOTHYROXINE SODIUM [Concomitant]
     Active Substance: LEVOTHYROXINE SODIUM
  14. LOSARTAN POTASSIUM [Concomitant]
     Active Substance: LOSARTAN POTASSIUM
  15. MAGNESIUM [Concomitant]
     Active Substance: MAGNESIUM
  16. METHOCARBAMOL [Concomitant]
     Active Substance: METHOCARBAMOL
  17. NITROGLYCERIN [Concomitant]
     Active Substance: NITROGLYCERIN
  18. NOVOLOG [Concomitant]
     Active Substance: INSULIN ASPART
  19. OLOPATADINE HYDROCHLORIDE [Concomitant]
     Active Substance: OLOPATADINE HYDROCHLORIDE
  20. OMEPRAZOLE [Concomitant]
     Active Substance: OMEPRAZOLE
  21. ROPINIROLE [Concomitant]
     Active Substance: ROPINIROLE
  22. ROSUVASTATIN CALCIUM [Concomitant]
     Active Substance: ROSUVASTATIN CALCIUM
  23. SERTRALINE HYDROCHLORIDE [Concomitant]
     Active Substance: SERTRALINE HYDROCHLORIDE

REACTIONS (1)
  - Dysphonia [Unknown]

NARRATIVE: CASE EVENT DATE: 20240101
